FAERS Safety Report 6467160-2 (Version None)
Quarter: 2009Q4

REPORT INFORMATION
  Report Type: 
  Country: None (occurrence: None)
  Receive Date: 20091202
  Receipt Date: 20091125
  Transmission Date: 20100525
  Serious: Yes (Life-Threatening, Hospitalization)
  Sender: FDA-Public Use
  Company Number: FR-CELGENEUS-056-21880-09112079

PATIENT
  Sex: Female
  Weight: 50 kg

DRUGS (11)
  1. REVLIMID [Suspect]
     Indication: MANTLE CELL LYMPHOMA
     Route: 048
     Dates: start: 20091021, end: 20091105
  2. ART 50 [Concomitant]
     Route: 048
  3. ART 50 [Concomitant]
  4. DETENSIEL [Concomitant]
     Route: 048
  5. COKENZEN [Concomitant]
     Route: 048
     Dates: end: 20091106
  6. VASTAREL [Concomitant]
     Indication: VERTIGO
     Route: 048
     Dates: end: 20091106
  7. PRAVASTATIN [Concomitant]
     Route: 048
     Dates: end: 20091105
  8. KARDEGIC [Concomitant]
     Route: 048
  9. PARIET [Concomitant]
     Route: 048
     Dates: end: 20091106
  10. LEXOMIL [Concomitant]
     Route: 048
     Dates: start: 20091105
  11. ATARAX [Concomitant]
     Route: 048
     Dates: start: 20091105, end: 20091105

REACTIONS (2)
  - RENAL FAILURE [None]
  - SKIN REACTION [None]
